FAERS Safety Report 12928637 (Version 1)
Quarter: 2016Q4

REPORT INFORMATION
  Report Type: Spontaneous
  Country: US (occurrence: US)
  Receive Date: 20161110
  Receipt Date: 20161110
  Transmission Date: 20170207
  Serious: No
  Sender: FDA-Public Use
  Company Number: US-BRISTOL-MYERS SQUIBB COMPANY-BMS-2016-093058

PATIENT
  Sex: Female

DRUGS (1)
  1. SPRYCEL [Suspect]
     Active Substance: DASATINIB
     Indication: MYELOID LEUKAEMIA
     Dosage: 100 MG, QD
     Route: 048
     Dates: start: 20161008, end: 20161020

REACTIONS (5)
  - Pharyngeal oedema [Unknown]
  - Urticaria [Unknown]
  - Peripheral swelling [Unknown]
  - Dyspnoea [Unknown]
  - Dysphagia [Unknown]
